FAERS Safety Report 13427665 (Version 2)
Quarter: 2017Q2

REPORT INFORMATION
  Report Type: Spontaneous
  Country: NL (occurrence: NL)
  Receive Date: 20170411
  Receipt Date: 20170504
  Transmission Date: 20170830
  Serious: Yes (Other)
  Sender: FDA-Public Use
  Company Number: NL-AUROBINDO-AUR-APL-2017-31891

PATIENT
  Age: 65 Year
  Sex: Female
  Weight: 79 kg

DRUGS (2)
  1. METRONIDAZOL CREME 10MG/G [Suspect]
     Active Substance: METRONIDAZOLE
     Indication: ROSACEA
     Dosage: 2X PER DAG
     Route: 003
     Dates: start: 20170316
  2. METRONIDAZOLE CREAM [Suspect]
     Active Substance: METRONIDAZOLE
     Indication: ROSACEA
     Dosage: 1 DF, TWO TIMES A DAY
     Route: 003
     Dates: start: 20170316

REACTIONS (3)
  - Nausea [Not Recovered/Not Resolved]
  - Alcohol intolerance [Not Recovered/Not Resolved]
  - Urinary retention [Recovered/Resolved]

NARRATIVE: CASE EVENT DATE: 20170316
